FAERS Safety Report 9524409 (Version 1)
Quarter: 2013Q1

REPORT INFORMATION
  Report Type: Spontaneous
  Country: US (occurrence: None)
  Receive Date: 20130313
  Receipt Date: 20130313
  Transmission Date: 20140127
  Serious: No
  Sender: FDA-Public Use
  Company Number: 1000030700

PATIENT
  Age: 54 Year
  Sex: Female

DRUGS (6)
  1. SAVELLA (MILNACIPRAN HYDROCHLORIDE) (TABLETS) [Suspect]
     Indication: FIBROMYALGIA
     Route: 048
     Dates: start: 201205, end: 201205
  2. GABAPENTIN (GABAPENTIN) (GABEPENTIN) [Concomitant]
  3. VICODIN (VICODIN) (VICODIN) [Concomitant]
  4. ESTRADIOL (ESTRADIOL) (ESTRADIOL) [Concomitant]
  5. IBUPROFEN (IBUPROFEN) (IBUPROFEN) [Concomitant]
  6. ZANTAC (RANITIDINE HYDROCHLORIDE) (RANITIDINE HYDROCHLORIDE) [Concomitant]

REACTIONS (1)
  - Vomiting [None]
